FAERS Safety Report 14391449 (Version 2)
Quarter: 2018Q1

REPORT INFORMATION
  Report Type: Report from Study
  Country: UA (occurrence: UA)
  Receive Date: 20180116
  Receipt Date: 20180129
  Transmission Date: 20180509
  Serious: Yes (Other)
  Sender: FDA-Public Use
  Company Number: UA-TEVA-2018-UA-844564

PATIENT
  Age: 4 Year
  Sex: Male
  Weight: 17.5 kg

DRUGS (11)
  1. LONQUEX [Suspect]
     Active Substance: LIPEGFILGRASTIM
     Indication: NEUTROPENIA
     Route: 058
     Dates: start: 20171222, end: 20171222
  2. CYCLOPHOSPHAMIDE. [Suspect]
     Active Substance: CYCLOPHOSPHAMIDE
     Indication: RHABDOMYOSARCOMA
     Route: 042
     Dates: start: 20171220, end: 20171221
  3. ACTINOMYCIN D [Suspect]
     Active Substance: DACTINOMYCIN
     Indication: RHABDOMYOSARCOMA
     Dosage: ONCE
     Route: 042
     Dates: start: 20171220, end: 20171220
  4. DEXAMETHASONE. [Concomitant]
     Active Substance: DEXAMETHASONE
     Indication: PROPHYLAXIS OF NAUSEA AND VOMITING
     Dosage: ONCE
     Route: 042
     Dates: start: 20171221, end: 20171224
  5. ONDANSETRON [Concomitant]
     Active Substance: ONDANSETRON
     Dosage: 8 MILLIGRAM DAILY;
     Route: 042
     Dates: start: 20171221, end: 20171222
  6. LASIX [Concomitant]
     Active Substance: FUROSEMIDE
     Dosage: 1 ML DAILY;
     Route: 042
     Dates: start: 20171221, end: 20171223
  7. ONDANSETRON [Concomitant]
     Active Substance: ONDANSETRON
     Indication: PROPHYLAXIS OF NAUSEA AND VOMITING
     Dosage: 6 MILLIGRAM DAILY;
     Route: 042
     Dates: start: 20171220, end: 20171220
  8. VINCRISTINE [Suspect]
     Active Substance: VINCRISTINE
     Indication: RHABDOMYOSARCOMA
     Dosage: CTX-DAY 1, 8 AND 15
     Route: 042
     Dates: start: 20171220, end: 20180103
  9. NEUPOGEN [Suspect]
     Active Substance: FILGRASTIM
     Indication: NEUTROPENIA
     Route: 058
     Dates: start: 20171222, end: 20171222
  10. LASIX [Concomitant]
     Active Substance: FUROSEMIDE
     Indication: PROPHYLAXIS
     Dosage: .5 ML DAILY;
     Route: 042
     Dates: start: 20171220, end: 20171220
  11. LASIX [Concomitant]
     Active Substance: FUROSEMIDE
     Dosage: .5 ML DAILY;
     Route: 042
     Dates: start: 20171224, end: 20171224

REACTIONS (1)
  - Lymphopenia [Recovered/Resolved]

NARRATIVE: CASE EVENT DATE: 20171222
